FAERS Safety Report 18143326 (Version 1)
Quarter: 2020Q3

REPORT INFORMATION
  Report Type: Spontaneous
  Country: DE (occurrence: DE)
  Receive Date: 20200812
  Receipt Date: 20200812
  Transmission Date: 20201103
  Serious: Yes (Other)
  Sender: FDA-Public Use
  Company Number: DE-COLLEGIUM PHARMACEUTICAL, INC.-DE-2020COL000581

PATIENT
  Sex: Male

DRUGS (12)
  1. LEVOFLOXACIN AUROBINDO [Concomitant]
     Active Substance: LEVOFLOXACIN
     Indication: PRODUCT USED FOR UNKNOWN INDICATION
     Dosage: 500 MG, UNK
     Dates: start: 20190121
  2. ESOMEPRAZOLE. [Concomitant]
     Active Substance: ESOMEPRAZOLE MAGNESIUM
     Dosage: 20 MG, 1?0?1
     Dates: start: 20200508
  3. PANTOPRAZOL                        /01263201/ [Concomitant]
     Active Substance: PANTOPRAZOLE
     Dosage: 40 MG, 1?0?1
     Dates: start: 20200227
  4. CEFURAX [Concomitant]
     Active Substance: CEFUROXIME AXETIL
     Indication: PRODUCT USED FOR UNKNOWN INDICATION
     Dosage: 250 MG,1?0?1
     Dates: start: 20190430
  5. ZACPAC [Concomitant]
     Active Substance: AMOXICILLIN\CLARITHROMYCIN\PANTOPRAZOLE
     Dosage: UNK (3?0?3)
     Dates: start: 20191022
  6. PANTOPRAZOL                        /01263201/ [Concomitant]
     Active Substance: PANTOPRAZOLE
     Indication: PRODUCT USED FOR UNKNOWN INDICATION
     Dosage: 40 MG, UNK
     Dates: start: 20191018
  7. TAMSULOSIN [Concomitant]
     Active Substance: TAMSULOSIN
     Indication: PRODUCT USED FOR UNKNOWN INDICATION
     Dosage: 0.4 MG, 1?0?0
     Dates: start: 20190821
  8. FERRO SANOL [Concomitant]
     Active Substance: FERROUS GLYCINE SULFATE
     Indication: PRODUCT USED FOR UNKNOWN INDICATION
     Dosage: UNK (1?0?1)
     Dates: start: 20191018
  9. ZACPAC [Concomitant]
     Active Substance: AMOXICILLIN\CLARITHROMYCIN\PANTOPRAZOLE
     Indication: PRODUCT USED FOR UNKNOWN INDICATION
     Dosage: UNK (3?0?3)
     Dates: start: 20191018
  10. CEFURAX [Concomitant]
     Active Substance: CEFUROXIME AXETIL
     Dosage: 500 MG, 1?0?1
     Dates: start: 20190521
  11. TAPENTADOL EXTENDED RELEASE [Suspect]
     Active Substance: TAPENTADOL
     Indication: FACIAL NEURALGIA
     Dosage: 100 MG, BID
     Route: 048
     Dates: start: 20141125, end: 20200103
  12. ESOMEPRAZOLE. [Concomitant]
     Active Substance: ESOMEPRAZOLE MAGNESIUM
     Indication: PRODUCT USED FOR UNKNOWN INDICATION
     Dosage: 20 MG, 1?0?1
     Dates: start: 20190211

REACTIONS (2)
  - Urge incontinence [Recovered/Resolved]
  - Dysuria [Recovered/Resolved]

NARRATIVE: CASE EVENT DATE: 2019
